FAERS Safety Report 13387759 (Version 2)
Quarter: 2017Q2

REPORT INFORMATION
  Report Type: Spontaneous
  Country: JP (occurrence: JP)
  Receive Date: 20170330
  Receipt Date: 20170427
  Transmission Date: 20170830
  Serious: Yes (Other)
  Sender: FDA-Public Use
  Company Number: JP-ROCHE-1913821

PATIENT
  Age: 80 Year
  Sex: Male

DRUGS (2)
  1. LUCENTIS [Suspect]
     Active Substance: RANIBIZUMAB
     Indication: AGE-RELATED MACULAR DEGENERATION
     Route: 031
  2. LUCENTIS [Suspect]
     Active Substance: RANIBIZUMAB
     Indication: MACULAR DYSTROPHY CONGENITAL
     Dosage: UNK
     Route: 031

REACTIONS (4)
  - Off label use [Unknown]
  - Dry age-related macular degeneration [Unknown]
  - Visual acuity reduced [Unknown]
  - Retinal detachment [Recovered/Resolved]
